FAERS Safety Report 7234075-1 (Version None)
Quarter: 2011Q1

REPORT INFORMATION
  Report Type: 
  Country: None (occurrence: None)
  Receive Date: 20110113
  Receipt Date: 20110113
  Transmission Date: 20110831
  Serious: Yes (Other)
  Sender: FDA-Public Use
  Company Number: None

PATIENT
  Sex: Female

DRUGS (1)
  1. AMPYRA [Suspect]
     Indication: MULTIPLE SCLEROSIS
     Dosage: 10MG 1 TABLET DAILY BY MOUTH (ONLY ONCE)
     Route: 048
     Dates: start: 20101124

REACTIONS (20)
  - BACK PAIN [None]
  - NAUSEA [None]
  - ARTHROPATHY [None]
  - DIZZINESS [None]
  - FALL [None]
  - ASTHENIA [None]
  - MUSCLE TWITCHING [None]
  - THROAT IRRITATION [None]
  - PARAESTHESIA [None]
  - GAIT DISTURBANCE [None]
  - HEADACHE [None]
  - BALANCE DISORDER [None]
  - PAIN [None]
  - PAIN IN EXTREMITY [None]
  - BLADDER PAIN [None]
  - INSOMNIA [None]
  - CHEST PAIN [None]
  - SKIN BURNING SENSATION [None]
  - MUSCULAR WEAKNESS [None]
  - POLLAKIURIA [None]
